FAERS Safety Report 8423377-9 (Version None)
Quarter: 2012Q2

REPORT INFORMATION
  Report Type: 
  Country: None (occurrence: None)
  Receive Date: 20120608
  Receipt Date: 20120524
  Transmission Date: 20120825
  Serious: Yes (Other)
  Sender: FDA-Public Use
  Company Number: CHPA2012US011463

PATIENT
  Age: 65 Year
  Sex: Female

DRUGS (5)
  1. EXCEDRIN EXTRA STRENGTH TABLETS [Suspect]
     Dosage: UNK, UNK
     Route: 048
  2. IBUPROFEN (ADVIL) [Concomitant]
     Indication: ARTHRITIS
     Dosage: UNK, UNK
     Route: 048
  3. EXCEDRIN PM TABLETS [Suspect]
     Indication: INSOMNIA
     Dosage: 1 OR 2 DF, UNK
     Route: 048
  4. EXCEDRIN (MIGRAINE) [Suspect]
     Indication: MIGRAINE
     Dosage: 1 TO 2 DF, UNK
     Route: 048
  5. NEXIUM [Concomitant]
     Indication: HYPERSENSITIVITY
     Dosage: UNK, UNK

REACTIONS (4)
  - UPPER RESPIRATORY TRACT INFECTION [None]
  - DIABETES MELLITUS [None]
  - PNEUMONIA [None]
  - COUGH [None]
